FAERS Safety Report 5792108-3 (Version None)
Quarter: 2008Q2

REPORT INFORMATION
  Report Type: 
  Country: None (occurrence: None)
  Receive Date: 20080623
  Receipt Date: 20080610
  Transmission Date: 20081010
  Serious: Yes (Hospitalization)
  Sender: FDA-Public Use
  Company Number: 2008BI014930

PATIENT
  Age: 55 Year
  Sex: Male

DRUGS (5)
  1. AVONEX [Suspect]
     Indication: MULTIPLE SCLEROSIS
     Dosage: 30 UG;QW;IM
     Route: 030
     Dates: start: 20000601
  2. ASS PEDIATRIC [Concomitant]
  3. CARVEDILOL [Concomitant]
  4. SUSTRATE [Concomitant]
  5. LASIX [Concomitant]

REACTIONS (6)
  - APPLICATION SITE NODULE [None]
  - HEADACHE [None]
  - MALAISE [None]
  - MYOCARDIAL INFARCTION [None]
  - PYREXIA [None]
  - TREMOR [None]
